FAERS Safety Report 26118783 (Version 1)
Quarter: 2025Q4

REPORT INFORMATION
  Report Type: Spontaneous
  Country: US (occurrence: US)
  Receive Date: 20251203
  Receipt Date: 20251203
  Transmission Date: 20260118
  Serious: No
  Sender: RECKITT BENCKISER
  Company Number: US-PROD-AS2-212756134-RB-099197-2022

PATIENT
  Age: 84 Year
  Sex: Male

DRUGS (2)
  1. DELSYM [Suspect]
     Active Substance: DEXTROMETHORPHAN
     Indication: Cough
     Dosage: TOOK 10MG EVERY 12 HOURS, FOR 4 DAYS
     Route: 048
     Dates: start: 20220917, end: 20220920
  2. DELSYM [Suspect]
     Active Substance: DEXTROMETHORPHAN
     Indication: Influenza

REACTIONS (2)
  - Gait disturbance [Recovered/Resolved]
  - Pain [Recovered/Resolved]

NARRATIVE: CASE EVENT DATE: 20220921
